FAERS Safety Report 9062811 (Version 1)
Quarter: 2013Q1

REPORT INFORMATION
  Report Type: Spontaneous
  Country: GB (occurrence: GB)
  Receive Date: 20130213
  Receipt Date: 20130213
  Transmission Date: 20140127
  Serious: Yes (Other)
  Sender: FDA-Public Use
  Company Number: GB-TEVA-383974ISR

PATIENT
  Age: 34 Year
  Sex: Female

DRUGS (6)
  1. METRONIDAZOLE [Suspect]
     Indication: HELICOBACTER GASTRITIS
     Route: 048
     Dates: start: 20130108, end: 20130110
  2. AMOXICILLIN [Concomitant]
  3. LANSOPRAZOLE [Concomitant]
  4. CHOLECALCIFEROL [Concomitant]
  5. CO-CODAMOL [Concomitant]
  6. LACTULOSE [Concomitant]

REACTIONS (3)
  - Hepatitis [Recovering/Resolving]
  - Liver function test abnormal [Recovering/Resolving]
  - Abdominal tenderness [Recovered/Resolved]
